FAERS Safety Report 22352745 (Version 1)
Quarter: 2023Q2

REPORT INFORMATION
  Report Type: Spontaneous
  Country: US (occurrence: US)
  Receive Date: 20230523
  Receipt Date: 20230523
  Transmission Date: 20230721
  Serious: Yes (Hospitalization, Other)
  Sender: FDA-Public Use
  Company Number: US-GLAXOSMITHKLINE-USCH2023AMR022713

PATIENT

DRUGS (2)
  1. IBUPROFEN [Suspect]
     Active Substance: IBUPROFEN
     Indication: Back pain
     Dosage: UNK, 400-800 MG
  2. IBUPROFEN [Suspect]
     Active Substance: IBUPROFEN
     Dosage: 400 MG

REACTIONS (17)
  - Angioedema [Unknown]
  - Lip swelling [Unknown]
  - Urticaria [Unknown]
  - Dermatitis allergic [Unknown]
  - Irregular breathing [Unknown]
  - Dysphonia [Unknown]
  - Oropharyngeal swelling [Unknown]
  - Heart rate decreased [Recovering/Resolving]
  - Cardiac arrest [Unknown]
  - Pallor [Unknown]
  - Hyperhidrosis [Unknown]
  - Posturing [Unknown]
  - Respiratory distress [Unknown]
  - Sinus bradycardia [Unknown]
  - Anaphylactic reaction [Unknown]
  - Kounis syndrome [Unknown]
  - Swelling face [Unknown]
